FAERS Safety Report 19052384 (Version 2)
Quarter: 2021Q4

REPORT INFORMATION
  Report Type: Spontaneous
  Country: CA (occurrence: None)
  Receive Date: 20210324
  Receipt Date: 20211229
  Transmission Date: 20220303
  Serious: Yes (Hospitalization)
  Sender: FDA-Public Use
  Company Number: CA-ROCHE-2792655

PATIENT
  Age: 32 Year
  Sex: Female

DRUGS (14)
  1. RITUXIMAB [Suspect]
     Active Substance: RITUXIMAB
     Indication: B precursor type acute leukaemia
     Dosage: 183.0 DAYS
     Route: 065
  2. BLINATUMOMAB [Suspect]
     Active Substance: BLINATUMOMAB
     Indication: B precursor type acute leukaemia
     Dosage: 3.0 DAYS
     Route: 042
  3. CYCLOPHOSPHAMIDE [Suspect]
     Active Substance: CYCLOPHOSPHAMIDE
     Indication: B precursor type acute leukaemia
     Dosage: 183.0 DAYS
     Route: 065
  4. CYTARABINE [Suspect]
     Active Substance: CYTARABINE
     Indication: B precursor type acute leukaemia
     Dosage: 183.0 DAYS POWDER FOR SOLUTION INTRATHECAL
     Route: 065
  5. DAUNORUBICIN [Suspect]
     Active Substance: DAUNORUBICIN
     Indication: B precursor type acute leukaemia
     Dosage: 183.0 DAYS
     Route: 065
  6. DEXAMETHASONE [Suspect]
     Active Substance: DEXAMETHASONE
     Indication: B precursor type acute leukaemia
     Dosage: 183.0 DAYS
     Route: 042
  7. DEXAMETHASONE [Suspect]
     Active Substance: DEXAMETHASONE
     Indication: Tremor
     Dosage: 183.0 DAYS
     Route: 042
  8. DEXAMETHASONE [Suspect]
     Active Substance: DEXAMETHASONE
     Indication: Dysarthria
     Route: 065
  9. DEXAMETHASONE [Suspect]
     Active Substance: DEXAMETHASONE
     Indication: Headache
  10. LEUCOVORIN CALCIUM [Suspect]
     Active Substance: LEUCOVORIN CALCIUM
     Indication: B precursor type acute leukaemia
     Dosage: 183.0 DAYS
     Route: 065
  11. MERCAPTOPURINE [Suspect]
     Active Substance: MERCAPTOPURINE
     Indication: B precursor type acute leukaemia
     Dosage: 183.0 DAYS
     Route: 065
  12. METHOTREXATE [Suspect]
     Active Substance: METHOTREXATE
     Indication: B precursor type acute leukaemia
     Dosage: 183.0 DAYS
     Route: 065
  13. PEGASPARGASE [Suspect]
     Active Substance: PEGASPARGASE
     Indication: B precursor type acute leukaemia
     Dosage: 183.0 DAYS
     Route: 065
  14. VINCRISTINE SULFATE [Suspect]
     Active Substance: VINCRISTINE SULFATE
     Indication: B precursor type acute leukaemia
     Dosage: 183.0 DAYS
     Route: 065

REACTIONS (4)
  - Alanine aminotransferase increased [Recovered/Resolved]
  - Dysarthria [Recovered/Resolved]
  - Headache [Recovered/Resolved]
  - Tremor [Recovered/Resolved]
